FAERS Safety Report 22186822 (Version 1)
Quarter: 2023Q2

REPORT INFORMATION
  Report Type: Report from Study
  Country: US (occurrence: None)
  Receive Date: 20230407
  Receipt Date: 20230407
  Transmission Date: 20230722
  Serious: Yes (Other)
  Sender: FDA-Public Use
  Company Number: 2023A078604

PATIENT
  Sex: Female
  Weight: 68.9 kg

DRUGS (7)
  1. TAGRISSO [Suspect]
     Active Substance: OSIMERTINIB
     Indication: Lung neoplasm malignant
     Route: 048
     Dates: start: 20230113
  2. PEPTO-BISMO [Concomitant]
  3. METAMUCIL [Concomitant]
     Active Substance: PLANTAGO SEED
  4. IMODIUM A-D [Concomitant]
     Active Substance: LOPERAMIDE HYDROCHLORIDE
  5. XANAX [Concomitant]
     Active Substance: ALPRAZOLAM
  6. MAGNESIUM OXIDE [Concomitant]
     Active Substance: MAGNESIUM OXIDE
  7. MUCINEX [Concomitant]
     Active Substance: GUAIFENESIN

REACTIONS (6)
  - Anaphylactic reaction [Unknown]
  - Stomatitis [Unknown]
  - Lip swelling [Unknown]
  - Diarrhoea [Unknown]
  - Retching [Unknown]
  - Glossitis [Unknown]
